FAERS Safety Report 9425457 (Version 2)
Quarter: 2013Q3

REPORT INFORMATION
  Report Type: Spontaneous
  Country: US (occurrence: US)
  Receive Date: 20130729
  Receipt Date: 20130801
  Transmission Date: 20140515
  Serious: No
  Sender: FDA-Public Use
  Company Number: US-009507513-1307USA015206

PATIENT
  Sex: Female
  Weight: 102.4 kg

DRUGS (7)
  1. MIRALAX [Suspect]
     Indication: CONSTIPATION
     Dosage: UNK, QD
     Route: 048
     Dates: start: 20130610, end: 20130710
  2. MIRALAX [Suspect]
     Indication: MEDICAL OBSERVATION
  3. SINGULAIR [Concomitant]
     Indication: HYPERSENSITIVITY
     Dosage: UNK, UNKNOWN
  4. TOPROL XL TABLETS [Concomitant]
     Indication: HYPERTENSION
     Dosage: UNK, UNKNOWN
  5. CRESTOR [Concomitant]
     Indication: BLOOD CHOLESTEROL INCREASED
     Dosage: UNK, UNKNOWN
  6. IBUPROFEN [Concomitant]
     Indication: OSTEOARTHRITIS
     Dosage: 800 MG, UNK
  7. BAYER ASPIRIN [Concomitant]
     Indication: MYOCARDIAL ISCHAEMIA
     Dosage: UNK, UNKNOWN

REACTIONS (2)
  - Incorrect drug administration duration [Unknown]
  - Product quality issue [Unknown]
